FAERS Safety Report 20468477 (Version 1)
Quarter: 2022Q1

REPORT INFORMATION
  Report Type: Spontaneous
  Country: US (occurrence: US)
  Receive Date: 20220214
  Receipt Date: 20220214
  Transmission Date: 20220423
  Serious: No
  Sender: FDA-Public Use
  Company Number: US-AMGEN-USASP2022022136

PATIENT
  Age: 56 Year
  Sex: Female

DRUGS (2)
  1. AIMOVIG [Suspect]
     Active Substance: ERENUMAB-AOOE
     Indication: Discomfort
     Dosage: 70 MILLIGRAM, QMO ^EVERY 28 DAYS^ (UNSUCCESSFUL ATTEMPT)
     Route: 065
     Dates: start: 20220206
  2. AIMOVIG [Suspect]
     Active Substance: ERENUMAB-AOOE
     Indication: Off label use

REACTIONS (2)
  - Device difficult to use [Unknown]
  - Off label use [Unknown]

NARRATIVE: CASE EVENT DATE: 20220206
